FAERS Safety Report 13936576 (Version 1)
Quarter: 2017Q3

REPORT INFORMATION
  Report Type: Spontaneous
  Country: US (occurrence: US)
  Receive Date: 20170905
  Receipt Date: 20170905
  Transmission Date: 20171127
  Serious: Yes (Hospitalization, Other)
  Sender: FDA-Public Use
  Company Number: US-BAYER-2017-164374

PATIENT
  Age: 78 Year
  Sex: Male
  Weight: 79.37 kg

DRUGS (6)
  1. ALEVE [Suspect]
     Active Substance: NAPROXEN SODIUM
     Dosage: 1 DF, QD
  2. PARSLEY. [Concomitant]
     Active Substance: PARSLEY
     Indication: NUTRITIONAL SUPPLEMENTATION
     Dosage: 1 DF, QD FOR YEARS
  3. GARLIC. [Concomitant]
     Active Substance: GARLIC
     Indication: NUTRITIONAL SUPPLEMENTATION
     Dosage: 1 DF, QD FOR YEARS
  4. PREDNISONE. [Concomitant]
     Active Substance: PREDNISONE
     Indication: ARTHRITIS
     Dosage: 5-10 MG DAILY
     Dates: end: 20170620
  5. SULFAZINE [Concomitant]
     Active Substance: SULFASALAZINE
     Indication: ARTHRITIS
     Dosage: 500 MG AT 1000 MG DAILY
     Dates: end: 20170620
  6. PLAQUENIL [Concomitant]
     Active Substance: HYDROXYCHLOROQUINE SULFATE
     Indication: ARTHRITIS
     Dosage: UNK
     Dates: start: 2012, end: 2015

REACTIONS (15)
  - Cerebrovascular accident [Unknown]
  - Nephropathy [Unknown]
  - Gluten sensitivity [Unknown]
  - Renal failure [Not Recovered/Not Resolved]
  - Chronic obstructive pulmonary disease [Unknown]
  - Pain [Unknown]
  - Gastrointestinal disorder [Unknown]
  - Ulcer [Unknown]
  - Renal disorder [Unknown]
  - Renal function test abnormal [Not Recovered/Not Resolved]
  - Product use issue [None]
  - Myocardial infarction [Unknown]
  - Urine output decreased [Not Recovered/Not Resolved]
  - Oedema peripheral [Unknown]
  - Eye disorder [Unknown]

NARRATIVE: CASE EVENT DATE: 2015
